FAERS Safety Report 24219306 (Version 2)
Quarter: 2024Q3

REPORT INFORMATION
  Report Type: Report from Study
  Country: CA (occurrence: None)
  Receive Date: 20240816
  Receipt Date: 20240820
  Transmission Date: 20241017
  Serious: Yes (Hospitalization, Other)
  Sender: ASTRAZENECA
  Company Number: 2024A184274

PATIENT
  Sex: Female

DRUGS (2)
  1. IMFINZI [Suspect]
     Active Substance: DURVALUMAB
     Indication: Hepatocellular carcinoma
     Route: 042
     Dates: start: 20240403
  2. IMJUDO [Suspect]
     Active Substance: TREMELIMUMAB\TREMELIMUMAB-ACTL
     Indication: Hepatocellular carcinoma
     Dosage: 300.0MG ONCE/SINGLE ADMINISTRATION
     Route: 042
     Dates: start: 20240403, end: 20240403

REACTIONS (7)
  - Troponin increased [Unknown]
  - Vascular neoplasm [Unknown]
  - Haemoglobin decreased [Unknown]
  - Polyp [Unknown]
  - Dyspnoea [Unknown]
  - Haematochezia [Unknown]
  - Streptococcal infection [Unknown]
